FAERS Safety Report 6912679-0 (Version None)
Quarter: 2010Q3

REPORT INFORMATION
  Report Type: 
  Country: None (occurrence: None)
  Receive Date: 20100806
  Receipt Date: 20081004
  Transmission Date: 20110219
  Serious: No
  Sender: FDA-Public Use
  Company Number: US-PFIZER INC-2008060239

PATIENT
  Sex: Female

DRUGS (1)
  1. MISOPROSTOL [Suspect]
     Indication: SMEAR CERVIX
     Route: 067
     Dates: start: 20080511

REACTIONS (4)
  - DYSPNOEA [None]
  - FEELING COLD [None]
  - OFF LABEL USE [None]
  - TREMOR [None]
